FAERS Safety Report 18637904 (Version 1)
Quarter: 2020Q4

REPORT INFORMATION
  Report Type: Spontaneous
  Country: PL (occurrence: PL)
  Receive Date: 20201218
  Receipt Date: 20201218
  Transmission Date: 20210114
  Serious: Yes (Life-Threatening, Hospitalization, Other)
  Sender: FDA-Public Use
  Company Number: PL-BAUSCH-BL-2020-036904

PATIENT
  Age: 35 Year
  Sex: Male

DRUGS (10)
  1. DEXAVEN [Suspect]
     Active Substance: DEXAMETHASONE
     Indication: TOXIC EPIDERMAL NECROLYSIS
     Route: 042
     Dates: start: 20180629, end: 20180709
  2. AUGMENTIN [Interacting]
     Active Substance: AMOXICILLIN\CLAVULANATE POTASSIUM
     Indication: UPPER RESPIRATORY TRACT INFECTION
     Route: 065
     Dates: start: 201806
  3. POTASSIUM PERMANGANATE [Suspect]
     Active Substance: POTASSIUM PERMANGANATE
     Indication: TOXIC EPIDERMAL NECROLYSIS
     Route: 065
     Dates: start: 201806
  4. LAMOTRIGINE. [Interacting]
     Active Substance: LAMOTRIGINE
     Indication: BIPOLAR DISORDER
     Route: 065
     Dates: start: 201804, end: 201807
  5. SERONIL [Concomitant]
     Active Substance: FLUOXETINE HYDROCHLORIDE
     Indication: BIPOLAR DISORDER
  6. LIQUID PARAFFIN [Suspect]
     Active Substance: MINERAL OIL
     Indication: TOXIC EPIDERMAL NECROLYSIS
     Route: 065
     Dates: start: 201806
  7. IMMUNOGLOBULINS [IMMUNOGLOBULINS NOS] [Suspect]
     Active Substance: IMMUNE GLOBULIN NOS
     Indication: TOXIC EPIDERMAL NECROLYSIS
     Route: 065
     Dates: start: 20180629, end: 20180703
  8. CYCLOSPORINE. [Suspect]
     Active Substance: CYCLOSPORINE
     Indication: TOXIC EPIDERMAL NECROLYSIS
     Route: 065
     Dates: start: 20180629, end: 20180703
  9. DEXAPOLCORT [Suspect]
     Active Substance: DEXAMETHASONE
     Indication: TOXIC EPIDERMAL NECROLYSIS
     Route: 065
     Dates: start: 201806
  10. NAPROXEN. [Interacting]
     Active Substance: NAPROXEN
     Indication: UPPER RESPIRATORY TRACT INFECTION
     Route: 065
     Dates: start: 201806

REACTIONS (3)
  - Drug interaction [Unknown]
  - Toxic epidermal necrolysis [Recovered/Resolved]
  - Therapy non-responder [Unknown]

NARRATIVE: CASE EVENT DATE: 2018
